FAERS Safety Report 19521421 (Version 1)
Quarter: 2021Q3

REPORT INFORMATION
  Report Type: Spontaneous
  Country: JP (occurrence: JP)
  Receive Date: 20210712
  Receipt Date: 20210712
  Transmission Date: 20211014
  Serious: Yes (Death, Other)
  Sender: FDA-Public Use
  Company Number: JP-TEVA-2021-JP-1930520

PATIENT
  Age: 71 Year
  Sex: Female

DRUGS (7)
  1. R CVP [Concomitant]
     Indication: DIFFUSE LARGE B-CELL LYMPHOMA
     Dosage: (8 CYCLES)
     Route: 065
  2. R?GDC [GEMCITABINE] [Suspect]
     Active Substance: GEMCITABINE
  3. R?GDC [RITUXIMAB] [Suspect]
     Active Substance: RITUXIMAB
  4. RITUXAN [Suspect]
     Active Substance: RITUXIMAB
     Indication: DIFFUSE LARGE B-CELL LYMPHOMA
     Dosage: (4 CYCLES)
     Route: 041
  5. TREAKISYM [Suspect]
     Active Substance: BENDAMUSTINE HYDROCHLORIDE
     Indication: DIFFUSE LARGE B-CELL LYMPHOMA
     Dosage: (4 CYCLES)
     Route: 041
  6. R?GDC [CARBOPLATIN] [Suspect]
     Active Substance: CARBOPLATIN
     Indication: DIFFUSE LARGE B-CELL LYMPHOMA
     Dosage: (1 CYCLE)
     Route: 065
  7. R?GDC [DEXAMETHASONE] [Suspect]
     Active Substance: DEXAMETHASONE

REACTIONS (2)
  - Product use in unapproved indication [Unknown]
  - Malignant neoplasm progression [Fatal]
